FAERS Safety Report 5423778-7 (Version None)
Quarter: 2007Q3

REPORT INFORMATION
  Report Type: 
  Country: None (occurrence: None)
  Receive Date: 20070727
  Receipt Date: 20040401
  Transmission Date: 20080115
  Serious: Yes (Life-Threatening)
  Sender: FDA-Public Use
  Company Number: THYM-10073

PATIENT

DRUGS (1)
  1. THYMOGLOBULIN [Suspect]

REACTIONS (1)
  - ANAPHYLACTIC REACTION [None]
